APPROVED DRUG PRODUCT: CONRAY 43
Active Ingredient: IOTHALAMATE MEGLUMINE
Strength: 43%
Dosage Form/Route: INJECTABLE;INJECTION
Application: N013295 | Product #002
Applicant: LIEBEL-FLARSHEIM CO LLC
Approved: Approved Prior to Jan 1, 1982 | RLD: Yes | RS: No | Type: DISCN